FAERS Safety Report 12503070 (Version 1)
Quarter: 2016Q2

REPORT INFORMATION
  Report Type: Spontaneous
  Country: US (occurrence: None)
  Receive Date: 20160627
  Receipt Date: 20160627
  Transmission Date: 20160815
  Serious: Yes (Hospitalization)
  Sender: FDA-Public Use
  Company Number: None

PATIENT
  Age: 77 Year
  Sex: Female

DRUGS (3)
  1. REMICADE [Suspect]
     Active Substance: INFLIXIMAB
     Indication: CROHN^S DISEASE
     Dosage: 5MG/KG (400MG) Q8WKS IV
     Route: 042
     Dates: start: 20150615, end: 2016
  2. IRON [Concomitant]
     Active Substance: IRON
  3. NEXIUM [Concomitant]
     Active Substance: ESOMEPRAZOLE MAGNESIUM

REACTIONS (2)
  - Renal failure [None]
  - Transfusion [None]

NARRATIVE: CASE EVENT DATE: 2016
